FAERS Safety Report 7400884-9 (Version None)
Quarter: 2011Q2

REPORT INFORMATION
  Report Type: 
  Country: None (occurrence: None)
  Receive Date: 20110407
  Receipt Date: 20110404
  Transmission Date: 20111010
  Serious: Yes (Other)
  Sender: FDA-Public Use
  Company Number: US-BAYER-201028172NA

PATIENT
  Sex: Female

DRUGS (4)
  1. HYDROMORPHONE HCL [Concomitant]
     Dates: start: 20080429
  2. YAZ [Suspect]
     Indication: PRODUCT USED FOR UNKNOWN INDICATION
     Dosage: UNK
     Route: 048
     Dates: start: 20080401, end: 20080701
  3. ZOFRAN [Concomitant]
     Dates: start: 20080425
  4. YASMIN [Suspect]
     Indication: PRODUCT USED FOR UNKNOWN INDICATION
     Dosage: UNK
     Dates: start: 20080401, end: 20080701

REACTIONS (4)
  - GALLBLADDER DISORDER [None]
  - PAIN [None]
  - INJURY [None]
  - EMOTIONAL DISTRESS [None]
